FAERS Safety Report 9401535 (Version 1)
Quarter: 2013Q3

REPORT INFORMATION
  Report Type: Report from Study
  Country: US (occurrence: US)
  Receive Date: 20130716
  Receipt Date: 20130716
  Transmission Date: 20140515
  Serious: Yes (Other)
  Sender: FDA-Public Use
  Company Number: US-ROCHE-1246080

PATIENT
  Sex: Female

DRUGS (4)
  1. TRASTUZUMAB [Suspect]
     Indication: BREAST CANCER
     Route: 065
  2. TRASTUZUMAB [Suspect]
     Dosage: LOADING DOSE
     Route: 065
  3. LAPATINIB [Suspect]
     Indication: BREAST CANCER
     Route: 048
  4. LETROZOLE [Concomitant]
     Route: 048

REACTIONS (7)
  - Diarrhoea [Unknown]
  - Rash [Unknown]
  - Alanine aminotransferase increased [Unknown]
  - Aspartate aminotransferase increased [Unknown]
  - Blood bilirubin increased [Unknown]
  - Hyperglycaemia [Unknown]
  - Hypertension [Unknown]
